FAERS Safety Report 12447121 (Version 1)
Quarter: 2016Q2

REPORT INFORMATION
  Report Type: Spontaneous
  Country: US (occurrence: None)
  Receive Date: 20160607
  Receipt Date: 20160607
  Transmission Date: 20160815
  Serious: Yes (Other)
  Sender: FDA-Public Use
  Company Number: None

PATIENT
  Age: 82 Year
  Sex: Male
  Weight: 88.45 kg

DRUGS (3)
  1. OMEPRAZOLE 20MG CAPSULE APOTEX CORP [Suspect]
     Active Substance: OMEPRAZOLE
     Indication: GASTROOESOPHAGEAL REFLUX DISEASE
     Dosage: 2 CAPSULES 30 MINUTES BEFORE BREAKFAST BY MOUTH
     Route: 048
     Dates: start: 20160318, end: 20160418
  2. NAPROXEN. [Concomitant]
     Active Substance: NAPROXEN
  3. MAGNESIUM [Concomitant]
     Active Substance: MAGNESIUM

REACTIONS (4)
  - Feeling abnormal [None]
  - Impaired driving ability [None]
  - Dizziness [None]
  - Product substitution issue [None]

NARRATIVE: CASE EVENT DATE: 20160318
